FAERS Safety Report 8207727-4 (Version None)
Quarter: 2012Q1

REPORT INFORMATION
  Report Type: 
  Country: None (occurrence: None)
  Receive Date: 20120314
  Receipt Date: 20120302
  Transmission Date: 20120608
  Serious: Yes (Hospitalization)
  Sender: FDA-Public Use
  Company Number: FR-SANOFI-AVENTIS-2012SA014318

PATIENT
  Age: 70 Year
  Sex: Male

DRUGS (13)
  1. LYRICA [Suspect]
     Dosage: DOSE:1 UNIT(S)
     Route: 048
     Dates: end: 20111220
  2. HUMALOG [Concomitant]
  3. ACETAMINOPHEN [Concomitant]
  4. TRIMEPRAZINE TARTRATE [Suspect]
     Indication: INSOMNIA
     Dosage: 4% ORAL SOLUTION
     Route: 048
     Dates: end: 20111220
  5. ATARAX [Suspect]
     Indication: ANXIETY
     Dosage: DOSE:3 UNIT(S)
     Route: 048
     Dates: end: 20111220
  6. ZOLPIDEM [Suspect]
     Indication: INSOMNIA
     Dosage: DOSE:2 UNIT(S)
     Route: 048
     Dates: end: 20111226
  7. NITROGLYCERIN [Suspect]
     Route: 062
     Dates: end: 20111201
  8. CANDESARTAN CILEXETIL AND HYDROCHLOROTHIAZIDE [Suspect]
     Route: 048
     Dates: end: 20111201
  9. ACETAMINOPHEN [Concomitant]
     Dosage: DOSE:4 UNIT(S)
     Route: 048
  10. LANTUS [Concomitant]
  11. ALUMINIUM HYDROXIDE GEL/MAGNESIUM HYDROXIDE [Concomitant]
  12. CRESTOR [Concomitant]
     Route: 048
  13. FEBUXOSTAT [Concomitant]
     Route: 048
     Dates: end: 20111201

REACTIONS (3)
  - ORTHOSTATIC HYPOTENSION [None]
  - DISORIENTATION [None]
  - FALL [None]
